FAERS Safety Report 6713855-2 (Version None)
Quarter: 2010Q2

REPORT INFORMATION
  Report Type: 
  Country: None (occurrence: None)
  Receive Date: 20100506
  Receipt Date: 20100204
  Transmission Date: 20101027
  Serious: Yes (Death)
  Sender: FDA-Public Use
  Company Number: AU-MERCK-1002USA00724

PATIENT
  Age: 75 Year
  Sex: Male

DRUGS (5)
  1. ZETIA [Suspect]
     Route: 048
     Dates: start: 20051216, end: 20080905
  2. ADALAT [Concomitant]
     Route: 065
  3. ASASANTIN [Concomitant]
     Route: 065
  4. LIPITOR [Concomitant]
     Route: 065
  5. NEXIUM [Concomitant]
     Route: 065

REACTIONS (1)
  - BILE DUCT CANCER [None]
